FAERS Safety Report 4269222-7 (Version None)
Quarter: 2004Q1

REPORT INFORMATION
  Report Type: 
  Country: None (occurrence: None)
  Receive Date: 20040109
  Receipt Date: 20040107
  Transmission Date: 20041129
  Serious: Yes (Death, Other)
  Sender: FDA-Public Use
  Company Number: US-SHR-03-003995

PATIENT
  Age: 58 Year
  Sex: Female

DRUGS (1)
  1. CAMPATH [Suspect]
     Indication: T-CELL LYMPHOMA

REACTIONS (6)
  - BLOOD ALKALINE PHOSPHATASE INCREASED [None]
  - BLOOD BILIRUBIN INCREASED [None]
  - CHOLESTASIS [None]
  - GASTRIC HAEMORRHAGE [None]
  - SEPSIS [None]
  - TUMOUR NECROSIS [None]
